FAERS Safety Report 6368146-9 (Version None)
Quarter: 2009Q3

REPORT INFORMATION
  Report Type: 
  Country: None (occurrence: None)
  Receive Date: 20090915
  Receipt Date: 20090915
  Transmission Date: 20100115
  Serious: No
  Sender: FDA-Public Use
  Company Number: None

PATIENT
  Age: 68 Year
  Sex: Female
  Weight: 77.4 kg

DRUGS (2)
  1. SORAFENIB-200MG 2 TIMES DAILY ORAL [Suspect]
     Indication: PANCREATIC CARCINOMA
     Dosage: LAST DOSE 9/11/09
     Dates: end: 20090911
  2. CAPECITABINE [Suspect]
     Dosage: LAST DOSE 08/30/09
     Dates: end: 20090830

REACTIONS (7)
  - ALANINE AMINOTRANSFERASE INCREASED [None]
  - ASPARTATE AMINOTRANSFERASE INCREASED [None]
  - BILE DUCT OBSTRUCTION [None]
  - BLOOD ALKALINE PHOSPHATASE INCREASED [None]
  - HYPERBILIRUBINAEMIA [None]
  - JAUNDICE CHOLESTATIC [None]
  - NEUROPATHY PERIPHERAL [None]
